FAERS Safety Report 6806678-7 (Version None)
Quarter: 2010Q2

REPORT INFORMATION
  Report Type: 
  Country: None (occurrence: None)
  Receive Date: 20100629
  Receipt Date: 20080408
  Transmission Date: 20101027
  Serious: No
  Sender: FDA-Public Use
  Company Number: US-PFIZER INC-2008031724

PATIENT
  Sex: Female
  Weight: 72.57 kg

DRUGS (11)
  1. CARDURA [Suspect]
     Indication: CYSTITIS INTERSTITIAL
     Dates: start: 20080407
  2. CELEBREX [Concomitant]
  3. PREMARIN [Concomitant]
  4. SINGULAIR [Concomitant]
     Indication: HYPERSENSITIVITY
  5. ALL OTHER THERAPEUTIC PRODUCTS [Concomitant]
  6. DOLPHIN [Concomitant]
  7. LIPITOR [Concomitant]
  8. ELMIRON [Concomitant]
  9. ALL OTHER THERAPEUTIC PRODUCTS [Concomitant]
  10. CLONAZEPAM [Concomitant]
  11. ALL OTHER THERAPEUTIC PRODUCTS [Concomitant]

REACTIONS (4)
  - CIRCUMSTANCE OR INFORMATION CAPABLE OF LEADING TO MEDICATION ERROR [None]
  - DIZZINESS [None]
  - SOMNOLENCE [None]
  - VISUAL IMPAIRMENT [None]
